FAERS Safety Report 24894908 (Version 1)
Quarter: 2025Q1

REPORT INFORMATION
  Report Type: Spontaneous
  Country: US (occurrence: US)
  Receive Date: 20250128
  Receipt Date: 20250128
  Transmission Date: 20250408
  Serious: Yes (Other)
  Sender: PFIZER
  Company Number: US-PFIZER INC-PV202500010025

PATIENT
  Age: 56 Year
  Sex: Male

DRUGS (4)
  1. LINEZOLID [Suspect]
     Active Substance: LINEZOLID
     Dosage: 600 MG, DAILY
     Route: 042
     Dates: start: 20241113
  2. AZITHROMYCIN [Suspect]
     Active Substance: AZITHROMYCIN
     Dosage: 500 MG, DAILY
     Route: 042
     Dates: start: 20241113
  3. IMIPENEM [Suspect]
     Active Substance: IMIPENEM
     Route: 042
     Dates: start: 20241113
  4. AMIKACIN [Suspect]
     Active Substance: AMIKACIN
     Route: 042
     Dates: start: 20241113

REACTIONS (1)
  - Arteriovenous graft site infection [Unknown]
